FAERS Safety Report 20133590 (Version 3)
Quarter: 2022Q1

REPORT INFORMATION
  Report Type: Report from Study
  Country: US (occurrence: US)
  Receive Date: 20211201
  Receipt Date: 20220219
  Transmission Date: 20220423
  Serious: No
  Sender: FDA-Public Use
  Company Number: US-NOVARTISTESTPH-NVSC2021US273383

PATIENT
  Age: 64 Year
  Sex: Female

DRUGS (1)
  1. COSENTYX [Suspect]
     Active Substance: SECUKINUMAB
     Indication: Psoriasis
     Dosage: 300 MG,(Q WEEK FOR FIVE WEEKS AND THEN Q MONTH)
     Route: 058
     Dates: start: 20211129

REACTIONS (3)
  - Pigmentation disorder [Unknown]
  - Oral pain [Unknown]
  - Anal incontinence [Unknown]

NARRATIVE: CASE EVENT DATE: 20211129
